FAERS Safety Report 25471097 (Version 2)
Quarter: 2025Q2

REPORT INFORMATION
  Report Type: Spontaneous
  Country: US (occurrence: US)
  Receive Date: 20250624
  Receipt Date: 20250630
  Transmission Date: 20250716
  Serious: No
  Sender: ROCHE
  Company Number: US-ROCHE-10000316162

PATIENT
  Age: 66 Year
  Sex: Female

DRUGS (5)
  1. XOLAIR [Suspect]
     Active Substance: OMALIZUMAB
     Indication: Pulmonary vasculitis
     Dosage: STRENGTH: 300 MG/2ML
     Route: 058
     Dates: start: 202208
  2. OFEV [Concomitant]
     Active Substance: NINTEDANIB
  3. XOLAIR PFS [Concomitant]
     Active Substance: OMALIZUMAB
  4. MYCOPHENOLATE MOFETIL [Concomitant]
     Active Substance: MYCOPHENOLATE MOFETIL
  5. NUCALA [Concomitant]
     Active Substance: MEPOLIZUMAB

REACTIONS (2)
  - Off label use [Unknown]
  - No adverse event [Unknown]
